FAERS Safety Report 9435737 (Version 4)
Quarter: 2013Q3

REPORT INFORMATION
  Report Type: Report from Study
  Country: CA (occurrence: CA)
  Receive Date: 20130801
  Receipt Date: 20130910
  Transmission Date: 20140515
  Serious: Yes (Death, Hospitalization)
  Sender: FDA-Public Use
  Company Number: CA-ABBOTT-13P-028-1124666-00

PATIENT
  Age: 75 Year
  Sex: Male
  Weight: 100 kg

DRUGS (5)
  1. LUPRON DEPOT [Suspect]
     Indication: PROSTATE CANCER
     Route: 030
     Dates: start: 201010, end: 20130824
  2. LUPRON DEPOT [Suspect]
     Dates: start: 1995
  3. FLUTAMIDE [Concomitant]
     Indication: PROSTATE CANCER
     Route: 048
     Dates: start: 20130629
  4. TYLENOL [Concomitant]
     Indication: PAIN
     Route: 048
  5. TYLENOL [Concomitant]
     Indication: HEADACHE

REACTIONS (4)
  - Prostate cancer metastatic [Fatal]
  - Metastatic neoplasm [Unknown]
  - Metastases to bone [Unknown]
  - Neoplasm malignant [Unknown]
